FAERS Safety Report 24635435 (Version 2)
Quarter: 2025Q1

REPORT INFORMATION
  Report Type: Spontaneous
  Country: US (occurrence: US)
  Receive Date: 20241119
  Receipt Date: 20250217
  Transmission Date: 20250409
  Serious: No
  Sender: FDC LIMITED
  Company Number: US-FDC-2024USSPO00835

PATIENT
  Sex: Male

DRUGS (1)
  1. TIMOLOL MALEATE [Suspect]
     Active Substance: TIMOLOL MALEATE
     Indication: Product used for unknown indication
     Route: 065

REACTIONS (1)
  - Vision blurred [Unknown]
